FAERS Safety Report 20429603 (Version 1)
Quarter: 2022Q1

REPORT INFORMATION
  Report Type: Report from Study
  Country: FR (occurrence: FR)
  Receive Date: 20220204
  Receipt Date: 20220204
  Transmission Date: 20220423
  Serious: Yes (Hospitalization)
  Sender: FDA-Public Use
  Company Number: FR-SERVIER-S19006523

PATIENT

DRUGS (6)
  1. PEGASPARGASE [Suspect]
     Active Substance: PEGASPARGASE
     Indication: Acute lymphocytic leukaemia
     Dosage: 2100 IU, ONE DOSE, ON DAY 4
     Route: 042
     Dates: start: 20190429, end: 20190429
  2. DEXAMETHASONE [Suspect]
     Active Substance: DEXAMETHASONE
     Indication: Acute lymphocytic leukaemia
     Dosage: 16.5 MG, DAILY FROM DAY 1 TO 21
     Route: 048
     Dates: start: 20190426
  3. TN UNSPECIFIED [Concomitant]
     Indication: Acute lymphocytic leukaemia
     Dosage: 2 MG, ON DAYS 1, 8, 15 AND 22
     Route: 042
     Dates: start: 20190426
  4. DOXORUBICIN [Concomitant]
     Active Substance: DOXORUBICIN
     Indication: Acute lymphocytic leukaemia
     Dosage: 50 MG, ON DAYS 1, 8, 15 AND 22
     Route: 042
     Dates: start: 20190426
  5. TN UNSPECIFIED [Concomitant]
     Indication: Acute lymphocytic leukaemia
     Dosage: 15 MG, ON DAYS 4 AND 31
     Route: 037
     Dates: start: 20190429
  6. BACTRIM [Concomitant]
     Active Substance: SULFAMETHOXAZOLE\TRIMETHOPRIM
     Indication: Infection prophylaxis
     Dosage: 20 MG, EVERY 2 DAYS
     Route: 048
     Dates: start: 20190426

REACTIONS (1)
  - Steroid diabetes [Recovered/Resolved]

NARRATIVE: CASE EVENT DATE: 20190430
